FAERS Safety Report 18055910 (Version 2)
Quarter: 2022Q2

REPORT INFORMATION
  Report Type: Report from Study
  Country: CA (occurrence: CA)
  Receive Date: 20200722
  Receipt Date: 20220627
  Transmission Date: 20220720
  Serious: Yes (Death, Other)
  Sender: FDA-Public Use
  Company Number: CA-002147023-NVSC2020CA196965

PATIENT

DRUGS (1)
  1. RUXOLITINIB [Suspect]
     Active Substance: RUXOLITINIB
     Indication: Myelofibrosis
     Dosage: 15 MG, BID
     Route: 048
     Dates: start: 20200707

REACTIONS (4)
  - Dysuria [Unknown]
  - Nausea [Unknown]
  - Death [Fatal]
  - Haematochezia [Unknown]

NARRATIVE: CASE EVENT DATE: 20220218
